FAERS Safety Report 15351407 (Version 4)
Quarter: 2019Q3

REPORT INFORMATION
  Report Type: Report from Study
  Country: JP (occurrence: JP)
  Receive Date: 20180905
  Receipt Date: 20190809
  Transmission Date: 20191004
  Serious: Yes (Death, Hospitalization, Other)
  Sender: FDA-Public Use
  Company Number: JP-009507513-1808JPN000842J

PATIENT
  Age: 55 Year
  Sex: Male
  Weight: 72 kg

DRUGS (13)
  1. NEXIUM [Suspect]
     Active Substance: ESOMEPRAZOLE MAGNESIUM
     Dosage: UNK
     Route: 048
  2. AZOSEMIDE [Suspect]
     Active Substance: AZOSEMIDE
     Dosage: 60 MILLIGRAM
     Route: 065
     Dates: start: 20180721, end: 20181107
  3. CANCIDAS [Suspect]
     Active Substance: CASPOFUNGIN ACETATE
     Dosage: 50 MG, UNK
     Route: 042
     Dates: start: 20180714
  4. PROGRAF [Suspect]
     Active Substance: TACROLIMUS\TACROLIMUS ANHYDROUS
     Indication: PROPHYLAXIS
     Dosage: 1.2 MG, UNK
     Route: 042
     Dates: start: 20180708, end: 20181002
  5. PREVYMIS [Suspect]
     Active Substance: LETERMOVIR
     Indication: APLASTIC ANAEMIA
     Dosage: 480 MILLIGRAM, QD
     Route: 041
     Dates: start: 20180718, end: 20180722
  6. ACELIO [Concomitant]
     Active Substance: ACETAMINOPHEN
     Dosage: 1000 MG, UNK
     Route: 042
     Dates: start: 20180704
  7. PREVYMIS [Suspect]
     Active Substance: LETERMOVIR
     Indication: APLASTIC ANAEMIA
     Dosage: 480 MILLIGRAM, QD
     Route: 048
     Dates: start: 20180723
  8. SAMSCA [Suspect]
     Active Substance: TOLVAPTAN
     Dosage: 3.75 MILLIGRAM
     Route: 048
     Dates: end: 20181107
  9. SAMTIREL [Suspect]
     Active Substance: ATOVAQUONE
     Dosage: 10 ML, UNK
     Route: 048
     Dates: start: 20180707
  10. NEUTROGIN [Concomitant]
     Active Substance: LENOGRASTIM
     Dosage: 350 MG, UNK
     Route: 042
     Dates: start: 20180710
  11. LUPRAC [Suspect]
     Active Substance: TORSEMIDE
     Dosage: 4 MILLIGRAM
     Route: 048
     Dates: end: 20180724
  12. FINIBAX [Suspect]
     Active Substance: DORIPENEM MONOHYDRATE
     Dosage: 1 G, BID
     Route: 042
     Dates: start: 20180725
  13. CUBICIN [Suspect]
     Active Substance: DAPTOMYCIN
     Dosage: 420 MG, UNK
     Route: 042
     Dates: start: 20180726

REACTIONS (4)
  - Hepatic function abnormal [Recovering/Resolving]
  - Pulmonary vein occlusion [Fatal]
  - Renal impairment [Recovering/Resolving]
  - Adverse event [Unknown]

NARRATIVE: CASE EVENT DATE: 20180721
